FAERS Safety Report 5683803-5 (Version None)
Quarter: 2008Q1

REPORT INFORMATION
  Report Type: 
  Country: None (occurrence: None)
  Receive Date: 20080326
  Receipt Date: 20080314
  Transmission Date: 20080703
  Serious: Yes (Congenital Anomaly)
  Sender: FDA-Public Use
  Company Number: 2008-173742-NL

PATIENT
  Age: 1 Day
  Sex: Male

DRUGS (2)
  1. MARVELON [Suspect]
     Dosage: TRANSPLACENTAL
     Route: 064
     Dates: end: 20060331
  2. OFLOXACIN [Suspect]
     Dosage: TRANSPLACENTAL
     Route: 064
     Dates: start: 20060301, end: 20060315

REACTIONS (2)
  - DRUG EXPOSURE DURING PREGNANCY [None]
  - HYPOSPADIAS [None]
